FAERS Safety Report 11828261 (Version 2)
Quarter: 2016Q3

REPORT INFORMATION
  Report Type: Spontaneous
  Country: GB (occurrence: GB)
  Receive Date: 20151211
  Receipt Date: 20160923
  Transmission Date: 20161109
  Serious: Yes (Other)
  Sender: FDA-Public Use
  Company Number: GB-ELI_LILLY_AND_COMPANY-GB201512002647

PATIENT
  Age: 15 Year
  Sex: Female

DRUGS (2)
  1. FLUOXETINE [Suspect]
     Active Substance: FLUOXETINE HYDROCHLORIDE
     Indication: DEPRESSION
     Dosage: 20 MG, QD
  2. LANREOTIDE [Concomitant]
     Active Substance: LANREOTIDE
     Indication: HYPERINSULINISM
     Dosage: 30 MG, MONTHLY (1/M)

REACTIONS (1)
  - Hypoglycaemia [Recovered/Resolved]
